FAERS Safety Report 17504572 (Version 2)
Quarter: 2021Q1

REPORT INFORMATION
  Report Type: Spontaneous
  Country: US (occurrence: US)
  Receive Date: 20200305
  Receipt Date: 20210107
  Transmission Date: 20210419
  Serious: No
  Sender: FDA-Public Use
  Company Number: US-PFIZER INC-2020099480

PATIENT
  Age: 66 Year
  Sex: Female

DRUGS (1)
  1. IBRANCE [Suspect]
     Active Substance: PALBOCICLIB
     Indication: BREAST CANCER FEMALE
     Dosage: 125 MG, UNK
     Dates: start: 20191231

REACTIONS (8)
  - Feeling abnormal [Unknown]
  - Crying [Unknown]
  - Dysstasia [Unknown]
  - Erythema [Unknown]
  - Skin swelling [Unknown]
  - Pain of skin [Unknown]
  - White blood cell count decreased [Unknown]
  - Dyspnoea exertional [Unknown]
